FAERS Safety Report 14983174 (Version 1)
Quarter: 2018Q2

REPORT INFORMATION
  Report Type: Spontaneous
  Country: US (occurrence: US)
  Receive Date: 20180515
  Receipt Date: 20180515
  Transmission Date: 20180711
  Serious: Yes (Disabling, Other)
  Sender: FDA-Public Use
  Company Number: None

PATIENT
  Age: 73 Year
  Sex: Female
  Weight: 50.8 kg

DRUGS (2)
  1. CALCIUM W/VIT D [Concomitant]
  2. OXYCODONE HCL 10MG TAB [Suspect]
     Active Substance: OXYCODONE HYDROCHLORIDE
     Indication: OSTEOARTHRITIS
     Dosage: ?          QUANTITY:120 DF DOSAGE FORM;?
     Route: 048
     Dates: start: 20180419

REACTIONS (3)
  - Product substitution issue [None]
  - Walking aid user [None]
  - Drug ineffective [None]

NARRATIVE: CASE EVENT DATE: 20180419
